FAERS Safety Report 6814324 (Version 4)
Quarter: 2013Q4

REPORT INFORMATION
  Report Type: Spontaneous
  Country: US (occurrence: US)
  Receive Date: 20081030
  Receipt Date: 20131209
  Transmission Date: 20140711
  Serious: Yes (Hospitalization, Other)
  Sender: FDA-Public Use
  Company Number: 2008BI028416

PATIENT
  Age: 50 Year
  Sex: Female
  Weight: 92 kg

DRUGS (2)
  1. AVONEX [Suspect]
     Indication: MULTIPLE SCLEROSIS
     Route: 030
     Dates: start: 20040102
  2. AVONEX [Suspect]
     Indication: MULTIPLE SCLEROSIS
     Route: 030
     Dates: start: 20070320

REACTIONS (15)
  - Arthropathy [Recovered/Resolved]
  - Joint lock [Recovered/Resolved]
  - Postoperative thrombosis [Recovered/Resolved]
  - Scar [Unknown]
  - Dysuria [Recovered/Resolved]
  - Post procedural complication [Recovered/Resolved]
  - Exostosis [Unknown]
  - Femur fracture [Recovered/Resolved]
  - Fall [Recovered/Resolved]
  - Neuralgia [Unknown]
  - Carpal tunnel syndrome [Not Recovered/Not Resolved]
  - Weight decreased [Not Recovered/Not Resolved]
  - Injection site pain [Unknown]
  - Muscle spasms [Unknown]
  - Anxiety [Recovered/Resolved with Sequelae]
